FAERS Safety Report 24083863 (Version 6)
Quarter: 2025Q3

REPORT INFORMATION
  Report Type: Spontaneous
  Country: CA (occurrence: CA)
  Receive Date: 20240712
  Receipt Date: 20250916
  Transmission Date: 20251021
  Serious: Yes (Disabling, Other)
  Sender: PFIZER
  Company Number: CA-PFIZER INC-202300452259

PATIENT
  Age: 74 Year
  Sex: Female

DRUGS (17)
  1. ABRILADA [Suspect]
     Active Substance: ADALIMUMAB-AFZB
     Indication: Rheumatoid arthritis
     Route: 058
     Dates: start: 20230503, end: 2023
  2. ABRILADA [Suspect]
     Active Substance: ADALIMUMAB-AFZB
     Route: 058
     Dates: start: 2023
  3. ABRILADA [Suspect]
     Active Substance: ADALIMUMAB-AFZB
     Route: 058
     Dates: start: 20231115
  4. ABRILADA [Suspect]
     Active Substance: ADALIMUMAB-AFZB
     Route: 058
     Dates: start: 2024
  5. ABRILADA [Suspect]
     Active Substance: ADALIMUMAB-AFZB
     Route: 058
     Dates: start: 20250218
  6. ABRILADA [Suspect]
     Active Substance: ADALIMUMAB-AFZB
     Route: 058
     Dates: start: 20250325
  7. ABRILADA [Suspect]
     Active Substance: ADALIMUMAB-AFZB
     Route: 058
     Dates: start: 20250401
  8. ABRILADA [Suspect]
     Active Substance: ADALIMUMAB-AFZB
     Route: 058
     Dates: start: 20250904
  9. ASPIRIN [Concomitant]
     Active Substance: ASPIRIN
  10. HYDROXYCHLOROQUINE [Concomitant]
     Active Substance: HYDROXYCHLOROQUINE
  11. EZETIMIBE [Concomitant]
     Active Substance: EZETIMIBE
  12. LEFLUNOMIDE [Concomitant]
     Active Substance: LEFLUNOMIDE
  13. METOPROLOL [Concomitant]
     Active Substance: METOPROLOL
  14. PERINDOPRIL [Concomitant]
     Active Substance: PERINDOPRIL
  15. PRIMIDONE [Concomitant]
     Active Substance: PRIMIDONE
  16. ROSUVASTATIN [Concomitant]
     Active Substance: ROSUVASTATIN
  17. TOPIRAMATE [Concomitant]
     Active Substance: TOPIRAMATE

REACTIONS (9)
  - Compression fracture [Unknown]
  - Spinal fracture [Unknown]
  - Dysstasia [Unknown]
  - Gait disturbance [Unknown]
  - Condition aggravated [Not Recovered/Not Resolved]
  - Nasopharyngitis [Recovered/Resolved]
  - Influenza [Recovered/Resolved]
  - Tremor [Not Recovered/Not Resolved]
  - Inappropriate schedule of product administration [Unknown]

NARRATIVE: CASE EVENT DATE: 20230101
